FAERS Safety Report 7350460-1 (Version None)
Quarter: 2011Q1

REPORT INFORMATION
  Report Type: 
  Country: None (occurrence: None)
  Receive Date: 20110314
  Receipt Date: 20110308
  Transmission Date: 20110831
  Serious: No
  Sender: FDA-Public Use
  Company Number: US-ELI_LILLY_AND_COMPANY-US201103003760

PATIENT
  Age: 94 Year
  Sex: Female

DRUGS (3)
  1. CYMBALTA [Suspect]
     Dosage: 30 D/F, UNKNOWN
  2. CYMBALTA [Suspect]
     Dosage: 20 D/F, UNKNOWN
  3. CYMBALTA [Suspect]
     Indication: DEPRESSION
     Dosage: 20 D/F, UNKNOWN

REACTIONS (1)
  - HEPATIC ENZYME INCREASED [None]
